FAERS Safety Report 17917083 (Version 2)
Quarter: 2020Q3

REPORT INFORMATION
  Report Type: Spontaneous
  Country: CN (occurrence: CN)
  Receive Date: 20200619
  Receipt Date: 20200710
  Transmission Date: 20201103
  Serious: Yes (Hospitalization)
  Sender: FDA-Public Use
  Company Number: CN-ELI_LILLY_AND_COMPANY-CN202006004398

PATIENT
  Age: 70 Year
  Sex: Female

DRUGS (1)
  1. FORSTEO 250UG/ML [Suspect]
     Active Substance: TERIPARATIDE
     Indication: OSTEOPOROSIS POSTMENOPAUSAL
     Dosage: 20 UG, DAILY
     Route: 058
     Dates: start: 201911, end: 202006

REACTIONS (2)
  - Lung adenocarcinoma stage 0 [Recovering/Resolving]
  - Pulmonary mass [Recovering/Resolving]
